FAERS Safety Report 9424591 (Version 1)
Quarter: 2013Q3

REPORT INFORMATION
  Report Type: Spontaneous
  Country: US (occurrence: None)
  Receive Date: 20130726
  Receipt Date: 20130726
  Transmission Date: 20140515
  Serious: No
  Sender: FDA-Public Use
  Company Number: None

PATIENT
  Age: 69 None
  Sex: Female
  Weight: 65.77 kg

DRUGS (2)
  1. CEPHALEXIN [Suspect]
     Indication: INFECTION
     Dosage: 1 CAPSULE
     Dates: start: 20130430, end: 20130506
  2. KEFLEX [Suspect]

REACTIONS (4)
  - Rash [None]
  - Skin exfoliation [None]
  - Pruritus [None]
  - Blister [None]
